FAERS Safety Report 21278532 (Version 1)
Quarter: 2022Q3

REPORT INFORMATION
  Report Type: Spontaneous
  Country: FR (occurrence: FR)
  Receive Date: 20220901
  Receipt Date: 20220901
  Transmission Date: 20221026
  Serious: Yes (Hospitalization)
  Sender: FDA-Public Use
  Company Number: None

PATIENT
  Age: 49 Year
  Sex: Male
  Weight: 80 kg

DRUGS (5)
  1. GENTAMICIN [Suspect]
     Active Substance: GENTAMICIN
     Indication: Septic shock
     Route: 042
     Dates: start: 20220716, end: 20220721
  2. DEXAMETHASONE [Suspect]
     Active Substance: DEXAMETHASONE
     Indication: Antiinflammatory therapy
     Route: 042
     Dates: start: 20220716, end: 20220723
  3. AMOXICILLIN [Suspect]
     Active Substance: AMOXICILLIN
     Indication: Septic shock
     Route: 042
     Dates: start: 20220716, end: 20220721
  4. ACYCLOVIR [Suspect]
     Active Substance: ACYCLOVIR
     Indication: Septic shock
     Dosage: 800MG 3/J
     Route: 065
     Dates: start: 20220716, end: 20220721
  5. CEFOTAXIME SODIUM [Suspect]
     Active Substance: CEFOTAXIME SODIUM
     Indication: Septic shock
     Route: 042
     Dates: start: 20220716, end: 20220721

REACTIONS (1)
  - Dermatitis bullous [Recovering/Resolving]

NARRATIVE: CASE EVENT DATE: 20220721
